FAERS Safety Report 17812443 (Version 2)
Quarter: 2020Q2

REPORT INFORMATION
  Report Type: Spontaneous
  Country: US (occurrence: US)
  Receive Date: 20200521
  Receipt Date: 20200630
  Transmission Date: 20200714
  Serious: Yes (Other)
  Sender: FDA-Public Use
  Company Number: US-PFIZER INC-2020199925

PATIENT
  Sex: Female
  Weight: 76.66 kg

DRUGS (1)
  1. PREMPRO [Suspect]
     Active Substance: ESTROGENS, CONJUGATED\MEDROXYPROGESTERONE ACETATE
     Indication: HOT FLUSH
     Dosage: 1 DF, DAILY(0.3-1.5MG, 1 TABLET BY MOUTH EVERY DAILY)
     Route: 048

REACTIONS (2)
  - Pneumonia [Recovering/Resolving]
  - Intentional product misuse [Unknown]
